FAERS Safety Report 16568084 (Version 2)
Quarter: 2019Q3

REPORT INFORMATION
  Report Type: Spontaneous
  Country: US (occurrence: US)
  Receive Date: 20190712
  Receipt Date: 20190924
  Transmission Date: 20191004
  Serious: No
  Sender: FDA-Public Use
  Company Number: US-PFIZER INC-2019300832

PATIENT
  Age: 89 Year
  Sex: Female
  Weight: 64.4 kg

DRUGS (9)
  1. TYLENOL [Concomitant]
     Active Substance: ACETAMINOPHEN
     Dosage: 500 MG
  2. LIPITOR [Concomitant]
     Active Substance: ATORVASTATIN CALCIUM
     Dosage: 40 MG
  3. SPIRIVA [Concomitant]
     Active Substance: TIOTROPIUM BROMIDE MONOHYDRATE
  4. FLOVENT [Concomitant]
     Active Substance: FLUTICASONE PROPIONATE
     Route: 055
  5. MELATONIN [Concomitant]
     Active Substance: MELATONIN
     Dosage: 5 MG
  6. XELJANZ XR [Suspect]
     Active Substance: TOFACITINIB CITRATE
     Indication: RHEUMATOID ARTHRITIS
     Dosage: 11 MG, 1X/DAY
     Dates: start: 20190607, end: 20190607
  7. ENBREL [Concomitant]
     Active Substance: ETANERCEPT
     Dosage: 50 MG, WEEKLY
  8. OMEPRAZOLE. [Concomitant]
     Active Substance: OMEPRAZOLE
     Dosage: 20 MG
  9. SINGULAIR [Concomitant]
     Active Substance: MONTELUKAST SODIUM
     Dosage: 10 MG

REACTIONS (6)
  - Constipation [Recovered/Resolved]
  - Symptom recurrence [Recovered/Resolved]
  - Dysuria [Unknown]
  - Abdominal pain upper [Recovered/Resolved]
  - Condition aggravated [Recovered/Resolved]
  - Gastric disorder [Recovered/Resolved]

NARRATIVE: CASE EVENT DATE: 20190607
